FAERS Safety Report 4606695-1 (Version None)
Quarter: 2005Q1

REPORT INFORMATION
  Report Type: 
  Country: None (occurrence: None)
  Receive Date: 20050311
  Receipt Date: 20050208
  Transmission Date: 20050727
  Serious: Yes (Hospitalization)
  Sender: FDA-Public Use
  Company Number: 2005S1000455

PATIENT
  Age: 39 Year
  Sex: Female
  Weight: 133.3575 kg

DRUGS (9)
  1. ESTRADIOL TRANSDERMAL SYSTEM, USP (0.1 MG/DAY) [Suspect]
     Indication: HORMONE REPLACEMENT THERAPY
     Dosage: 0.2 MG/DAY; TDER
     Dates: start: 20040101, end: 20050113
  2. CLONIDINE [Concomitant]
  3. PROTONIX [Concomitant]
  4. EFFEXOR [Concomitant]
  5. HYDROCHLOROTHIAZIDE [Concomitant]
  6. COZAAR [Concomitant]
  7. BUDESONIDE [Concomitant]
  8. BISOPROLOL FUMARATE AND HYDROCHLOROTHIAZIDE [Concomitant]
  9. CAFFEINE (BUTALBITAL/PARACETAMOL) [Concomitant]

REACTIONS (15)
  - APPLICATION SITE ERYTHEMA [None]
  - APPLICATION SITE IRRITATION [None]
  - APPLICATION SITE PRURITUS [None]
  - ASTHENIA [None]
  - BREAST TENDERNESS [None]
  - DIZZINESS [None]
  - HEADACHE [None]
  - HYPERTROPHY BREAST [None]
  - HYPOAESTHESIA [None]
  - LARYNGITIS [None]
  - MUSCLE SPASMS [None]
  - NAUSEA [None]
  - SKIN DISCOLOURATION [None]
  - STOMACH DISCOMFORT [None]
  - TRANSIENT ISCHAEMIC ATTACK [None]
